FAERS Safety Report 5408504-X (Version None)
Quarter: 2007Q3

REPORT INFORMATION
  Report Type: 
  Country: None (occurrence: None)
  Receive Date: 20070806
  Receipt Date: 20070727
  Transmission Date: 20080115
  Serious: Yes (Life-Threatening, Hospitalization, Disabling)
  Sender: FDA-Public Use
  Company Number: 163-21880-07061418

PATIENT
  Age: 43 Year
  Sex: Male

DRUGS (17)
  1. REVLIMID [Suspect]
     Indication: MULTIPLE MYELOMA
     Dosage: 25 MG, 1 IN 1 D; ORAL
     Route: 048
     Dates: start: 20070430, end: 20070501
  2. DEXAMETHASONE TAB [Suspect]
     Indication: MULTIPLE MYELOMA
     Dosage: 40 MG, ONCE EVERY MONDAY, ORAL), 10 MG QD; ORAL
     Route: 048
     Dates: start: 20050125
  3. DEXAMETHASONE TAB [Suspect]
     Indication: MULTIPLE MYELOMA
     Dosage: 40 MG, ONCE EVERY MONDAY, ORAL), 10 MG QD; ORAL
     Route: 048
     Dates: start: 20070627
  4. TACROLIMUS [Concomitant]
  5. MAGIC SWIZZLE (CORN STARCH) [Concomitant]
  6. GUAIFENESIN [Concomitant]
  7. XENADERM (GRANULEX) [Concomitant]
  8. PROTONIX [Concomitant]
  9. ATIVAN [Concomitant]
  10. MOXIFLOXACIN (MOXIFLOXACIN) (SOLUTION) [Concomitant]
  11. NEURONTIN [Concomitant]
  12. CIPROFLOXACIN [Concomitant]
  13. VORICONAZOLE (VORICONAZOLE) [Concomitant]
  14. TRIFLURIDINE (TRIFLURIDINE) (SOLUTION) [Concomitant]
  15. MAGNESIUM OXIDE (MAGNESIUM OXIDE) [Concomitant]
  16. AZITHROMYCIN [Concomitant]
  17. FUROSEMIDE [Concomitant]

REACTIONS (27)
  - ACUTE RESPIRATORY DISTRESS SYNDROME [None]
  - ASPARTATE AMINOTRANSFERASE INCREASED [None]
  - BLOOD ALKALINE PHOSPHATASE INCREASED [None]
  - BLOOD CULTURE POSITIVE [None]
  - BLOOD UREA INCREASED [None]
  - BRAIN NATRIURETIC PEPTIDE INCREASED [None]
  - CULTURE WOUND POSITIVE [None]
  - DILATATION VENTRICULAR [None]
  - EJECTION FRACTION DECREASED [None]
  - ESCHERICHIA INFECTION [None]
  - FLUID OVERLOAD [None]
  - HAEMATOCRIT DECREASED [None]
  - HAEMOGLOBIN DECREASED [None]
  - HYPOTENSION [None]
  - KERATITIS HERPETIC [None]
  - PNEUMONIA [None]
  - PNEUMONIA PRIMARY ATYPICAL [None]
  - PYREXIA [None]
  - RED BLOOD CELL COUNT DECREASED [None]
  - RENAL FAILURE ACUTE [None]
  - RESPIRATORY FAILURE [None]
  - SEPTIC SHOCK [None]
  - STAPHYLOCOCCAL INFECTION [None]
  - THROMBOCYTOPENIA [None]
  - WHITE BLOOD CELL COUNT DECREASED [None]
  - WHITE BLOOD CELL COUNT INCREASED [None]
  - WOUND [None]
